FAERS Safety Report 4877978-5 (Version None)
Quarter: 2005Q4

REPORT INFORMATION
  Report Type: 
  Country: None (occurrence: None)
  Receive Date: 20051206
  Receipt Date: 20050907
  Transmission Date: 20060501
  Serious: No
  Sender: FDA-Public Use
  Company Number: USA0509107449

PATIENT
  Age: 52 Year
  Sex: Female

DRUGS (16)
  1. CYMBALTA [Suspect]
     Indication: PAIN
     Dosage: 90 MG DAY
     Dates: start: 20050601
  2. LIPITOR [Concomitant]
  3. MENEST [Concomitant]
  4. SULINDAC [Concomitant]
  5. LAMICTAL [Concomitant]
  6. TYLENOL W/ CODEINE [Concomitant]
  7. POTASSIUM [Concomitant]
  8. TRAZODONE [Concomitant]
  9. DYAZIDE [Concomitant]
  10. CLONIDINE [Concomitant]
  11. PREVACID [Concomitant]
  12. CLONAZEPAM [Concomitant]
  13. DURAGESIC-100 [Concomitant]
  14. PERCOCET [Concomitant]
  15. AMITRIPTYLINE HCL [Concomitant]
  16. EFFEXOR [Concomitant]

REACTIONS (2)
  - EYE INFLAMMATION [None]
  - VISUAL DISTURBANCE [None]
